FAERS Safety Report 15008444 (Version 1)
Quarter: 2018Q2

REPORT INFORMATION
  Report Type: Spontaneous
  Country: US (occurrence: US)
  Receive Date: 20180521
  Receipt Date: 20180521
  Transmission Date: 20180711
  Serious: Yes (Death)
  Sender: FDA-Public Use
  Company Number: None

PATIENT
  Age: 26 Year
  Sex: Female

DRUGS (19)
  1. ESCITALOPRAM [Concomitant]
     Active Substance: ESCITALOPRAM OXALATE
  2. OXYCODONE [Concomitant]
     Active Substance: OXYCODONE
  3. AZITHROMYCIN ANHYDROUS. [Concomitant]
     Active Substance: AZITHROMYCIN ANHYDROUS
  4. HEPARIN [Concomitant]
     Active Substance: HEPARIN SODIUM
  5. FILGRASTIM [Concomitant]
     Active Substance: FILGRASTIM
  6. LACTATED RINGERS SOLUTION [Concomitant]
     Active Substance: CALCIUM CHLORIDE\POTASSIUM CHLORIDE\SODIUM CHLORIDE\SODIUM LACTATE
  7. LORAZAPAM [Concomitant]
     Active Substance: LORAZEPAM
  8. FAMOTIDINE. [Concomitant]
     Active Substance: FAMOTIDINE
  9. POLYETHYLENE GLYCOL 3350. [Concomitant]
     Active Substance: POLYETHYLENE GLYCOL 3350
  10. PEGASPARAGINASE [Suspect]
     Active Substance: PEGASPARGASE
     Indication: LEUKAEMIA
     Route: 042
     Dates: start: 20180122, end: 20180123
  11. MIRTAZAPINE. [Concomitant]
     Active Substance: MIRTAZAPINE
  12. NOREPINEPHRINE. [Concomitant]
     Active Substance: NOREPINEPHRINE
  13. CASPOFUNGIN [Concomitant]
     Active Substance: CASPOFUNGIN
  14. FENTANYL. [Concomitant]
     Active Substance: FENTANYL
  15. SULFAMETHOXAZOLE/TRIMETHOPRIM [Concomitant]
     Active Substance: SULFAMETHOXAZOLE\TRIMETHOPRIM
  16. VANCOMYCIN [Concomitant]
     Active Substance: VANCOMYCIN
  17. ACYCLOVIR. [Concomitant]
     Active Substance: ACYCLOVIR
  18. CEFEPIME [Concomitant]
     Active Substance: CEFEPIME HYDROCHLORIDE
  19. CHLORHEXADINE [Concomitant]
     Active Substance: CHLORHEXIDINE

REACTIONS (8)
  - Antithrombin III decreased [None]
  - Streptococcal bacteraemia [None]
  - Spinal cord infarction [None]
  - Hypercoagulation [None]
  - Febrile neutropenia [None]
  - Infarction [None]
  - Subclavian artery occlusion [None]
  - Vertebral artery occlusion [None]

NARRATIVE: CASE EVENT DATE: 20180122
